FAERS Safety Report 5114594-4 (Version None)
Quarter: 2006Q3

REPORT INFORMATION
  Report Type: 
  Country: None (occurrence: None)
  Receive Date: 20060926
  Receipt Date: 20060914
  Transmission Date: 20061208
  Serious: Yes (Death, Other)
  Sender: FDA-Public Use
  Company Number: US-JNJFOC-20051200958

PATIENT
  Sex: Female

DRUGS (9)
  1. REMICADE [Suspect]
     Indication: RHEUMATOID ARTHRITIS
     Route: 042
  2. FOSAMAX [Concomitant]
  3. FOLIC ACID [Concomitant]
  4. PLAQUENIL [Concomitant]
  5. PREDNISONE TAB [Concomitant]
  6. METHOTREXATE [Concomitant]
  7. OSCAL [Concomitant]
  8. CENTRUM [Concomitant]
  9. PROPOXY NAP/APAP [Concomitant]

REACTIONS (5)
  - ESSENTIAL HYPERTENSION [None]
  - PNEUMONIA [None]
  - RENAL FAILURE ACUTE [None]
  - RESPIRATORY FAILURE [None]
  - RHEUMATOID ARTHRITIS [None]
